FAERS Safety Report 9296156 (Version 1)
Quarter: 2013Q2

REPORT INFORMATION
  Report Type: Report from Study
  Country: US (occurrence: US)
  Receive Date: 20130517
  Receipt Date: 20130517
  Transmission Date: 20140414
  Serious: Yes (Hospitalization)
  Sender: FDA-Public Use
  Company Number: US-PFIZER INC-2013147326

PATIENT
  Age: 61 Year
  Sex: Male

DRUGS (6)
  1. TEMSIROLIMUS [Suspect]
     Indication: HEAD AND NECK CANCER
     Dosage: UNK
     Dates: start: 20130418
  2. TEMSIROLIMUS [Suspect]
     Indication: TONSIL CANCER
  3. CARBOPLATIN [Suspect]
     Indication: HEAD AND NECK CANCER
     Dosage: UNK
     Dates: start: 20130418
  4. CARBOPLATIN [Suspect]
     Indication: TONSIL CANCER
  5. TAXOL [Suspect]
     Indication: HEAD AND NECK CANCER
     Dosage: UNK
     Dates: start: 20130418
  6. TAXOL [Suspect]
     Indication: TONSIL CANCER

REACTIONS (1)
  - Febrile neutropenia [Unknown]
